FAERS Safety Report 5760425-9 (Version None)
Quarter: 2008Q2

REPORT INFORMATION
  Report Type: 
  Country: None (occurrence: None)
  Receive Date: 20080605
  Receipt Date: 20080527
  Transmission Date: 20081010
  Serious: Yes (Other)
  Sender: FDA-Public Use
  Company Number: JP-PFIZER INC-2008045256

PATIENT
  Age: 60 Year
  Sex: Female

DRUGS (4)
  1. ZITHROMAX [Suspect]
     Dosage: DAILY DOSE:500MG-FREQ:EVERY DAY FOR THREE DAY
     Route: 048
     Dates: start: 20080401, end: 20080403
  2. LOXONIN [Suspect]
     Route: 048
  3. CLARITHROMYCIN [Suspect]
     Route: 048
  4. NORVASC [Concomitant]
     Indication: HYPERTENSION
     Route: 048

REACTIONS (1)
  - HAEMOLYTIC ANAEMIA [None]
